FAERS Safety Report 9877016 (Version 2)
Quarter: 2014Q2

REPORT INFORMATION
  Report Type: Spontaneous
  Country: IT (occurrence: None)
  Receive Date: 20140204
  Receipt Date: 20140402
  Transmission Date: 20141212
  Serious: Yes (Other)
  Sender: FDA-Public Use
  Company Number: AUR-APL-2014-01030

PATIENT
  Age: 66 Year
  Sex: Female

DRUGS (2)
  1. CARVEDILOL (CARVEDILOL) [Suspect]
     Indication: PRODUCT USED FOR UNKNOWN INDICATION
     Dates: start: 20130101, end: 20131011
  2. CARDIOASPIRIN ( ACETYLSALICYLIC ACID) [Concomitant]

REACTIONS (1)
  - Syncope [None]
